FAERS Safety Report 7361948-1 (Version None)
Quarter: 2011Q1

REPORT INFORMATION
  Report Type: 
  Country: None (occurrence: None)
  Receive Date: 20110315
  Receipt Date: 20110315
  Transmission Date: 20110831
  Serious: Yes (Hospitalization)
  Sender: FDA-Public Use
  Company Number: None

PATIENT
  Sex: Male
  Weight: 39.4 kg

DRUGS (2)
  1. ETANERCEPT 25 MG AMGEN [Suspect]
     Indication: SPONDYLITIS
     Dosage: 50 MG WEEKLY SQ
     Route: 058
     Dates: start: 20100218, end: 20110223
  2. ETANERCEPT 25 MG AMGEN [Suspect]
     Indication: SACROILIITIS
     Dosage: 50 MG WEEKLY SQ
     Route: 058
     Dates: start: 20100218, end: 20110223

REACTIONS (9)
  - DIZZINESS [None]
  - INJECTION SITE ERYTHEMA [None]
  - DISEASE RECURRENCE [None]
  - SYNCOPE [None]
  - INJECTION SITE PAIN [None]
  - SACROILIITIS [None]
  - PRESYNCOPE [None]
  - ORTHOSTATIC HYPOTENSION [None]
  - MALAISE [None]
